FAERS Safety Report 7512778-9 (Version None)
Quarter: 2011Q2

REPORT INFORMATION
  Report Type: 
  Country: None (occurrence: None)
  Receive Date: 20110531
  Receipt Date: 20110523
  Transmission Date: 20111010
  Serious: Yes (Hospitalization)
  Sender: FDA-Public Use
  Company Number: B0707759A

PATIENT
  Sex: Male

DRUGS (2)
  1. SOBREROL [Suspect]
     Indication: PRODUCT USED FOR UNKNOWN INDICATION
     Dates: start: 20101216, end: 20101217
  2. AUGMENTIN [Suspect]
     Indication: COUGH
     Route: 048
     Dates: start: 20101216, end: 20101217

REACTIONS (3)
  - DYSPNOEA [None]
  - BRONCHIOLITIS [None]
  - BRONCHOSPASM [None]
